FAERS Safety Report 10676383 (Version 2)
Quarter: 2014Q4

REPORT INFORMATION
  Report Type: Spontaneous
  Country: MA (occurrence: MA)
  Receive Date: 20141226
  Receipt Date: 20141226
  Transmission Date: 20150529
  Serious: Yes (Other)
  Sender: FDA-Public Use
  Company Number: MA-CIPLA LTD.-2014MA02900

PATIENT

DRUGS (1)
  1. CARBOPLATIN. [Suspect]
     Active Substance: CARBOPLATIN
     Indication: NASOPHARYNGEAL CANCER
     Dosage: 400 MG/M2 ON DAY 1 EVERY FOUR WEEKS
     Route: 042

REACTIONS (1)
  - Renal failure [Not Recovered/Not Resolved]
